FAERS Safety Report 20000839 (Version 1)
Quarter: 2021Q4

REPORT INFORMATION
  Report Type: Other
  Country: CN (occurrence: CN)
  Receive Date: 20211027
  Receipt Date: 20211027
  Transmission Date: 20220303
  Serious: Yes (Other)
  Sender: FDA-Public Use
  Company Number: CN-ROCHE-2093668

PATIENT
  Age: 61 Year
  Sex: Female
  Weight: 52 kg

DRUGS (2)
  1. AVASTIN [Suspect]
     Active Substance: BEVACIZUMAB
     Indication: Colorectal cancer
     Route: 041
     Dates: start: 20170814
  2. AVASTIN [Suspect]
     Active Substance: BEVACIZUMAB
     Route: 041
     Dates: start: 20170814

REACTIONS (8)
  - Platelet count decreased [Unknown]
  - Nasopharyngitis [Unknown]
  - Pyrexia [Unknown]
  - Urine analysis abnormal [Unknown]
  - Protein urine present [Unknown]
  - Protein urine present [Recovered/Resolved]
  - Protein urine present [Unknown]
  - Intestinal obstruction [Unknown]

NARRATIVE: CASE EVENT DATE: 20190417
